FAERS Safety Report 18198524 (Version 1)
Quarter: 2020Q3

REPORT INFORMATION
  Report Type: Spontaneous
  Country: CA (occurrence: CA)
  Receive Date: 20200826
  Receipt Date: 20200826
  Transmission Date: 20201103
  Serious: Yes (Life-Threatening, Other)
  Sender: FDA-Public Use
  Company Number: CA-ASTRAZENECA-2020SF06817

PATIENT
  Sex: Female

DRUGS (1)
  1. SYMBICORT [Suspect]
     Active Substance: BUDESONIDE\FORMOTEROL FUMARATE DIHYDRATE
     Route: 055

REACTIONS (8)
  - Drug ineffective [Unknown]
  - Dyspnoea [Unknown]
  - Cough [Unknown]
  - Memory impairment [Unknown]
  - Incorrect dose administered by device [Unknown]
  - Abdominal discomfort [Unknown]
  - Loss of consciousness [Unknown]
  - Bronchospasm [Unknown]
